FAERS Safety Report 7088637-5 (Version None)
Quarter: 2010Q4

REPORT INFORMATION
  Report Type: 
  Country: None (occurrence: None)
  Receive Date: 20101108
  Receipt Date: 20101028
  Transmission Date: 20110411
  Serious: Yes (Hospitalization, Disabling, Other)
  Sender: FDA-Public Use
  Company Number: BR-BAYER-201019515LA

PATIENT
  Age: 46 Year
  Sex: Female

DRUGS (3)
  1. BETAFERON [Suspect]
     Indication: MULTIPLE SCLEROSIS
     Dosage: BETAJECT
     Route: 058
  2. BETAFERON [Suspect]
     Dosage: BETAJECT
     Route: 065
     Dates: start: 20040101
  3. CEFALIUM [Concomitant]
     Indication: MIGRAINE
     Route: 048

REACTIONS (9)
  - BALANCE DISORDER [None]
  - FALL [None]
  - GAIT DISTURBANCE [None]
  - HEADACHE [None]
  - LOCAL SWELLING [None]
  - MOBILITY DECREASED [None]
  - PAIN IN EXTREMITY [None]
  - TOOTH DISORDER [None]
  - WRIST FRACTURE [None]
